FAERS Safety Report 25774888 (Version 1)
Quarter: 2025Q3

REPORT INFORMATION
  Report Type: Spontaneous
  Country: US (occurrence: None)
  Receive Date: 20250908
  Receipt Date: 20250908
  Transmission Date: 20251021
  Serious: Yes (Hospitalization)
  Sender: FDA-CTU
  Company Number: None

PATIENT
  Sex: Female

DRUGS (2)
  1. TADALAFIL [Suspect]
     Active Substance: TADALAFIL
     Indication: Pulmonary arterial hypertension
     Dosage: 20MG DAILY ORAL
     Route: 048
  2. TYVASO [Suspect]
     Active Substance: TREPROSTINIL

REACTIONS (3)
  - Epistaxis [None]
  - Condition aggravated [None]
  - Pulmonary arterial hypertension [None]
